FAERS Safety Report 6668769-3 (Version None)
Quarter: 2010Q2

REPORT INFORMATION
  Report Type: 
  Country: None (occurrence: None)
  Receive Date: 20100406
  Receipt Date: 20100402
  Transmission Date: 20101027
  Serious: Yes (Life-Threatening, Hospitalization)
  Sender: FDA-Public Use
  Company Number: FR-JNJFOC-20100205103

PATIENT
  Age: 69 Year
  Sex: Female

DRUGS (6)
  1. RISPERDAL [Suspect]
     Indication: PSYCHOTIC DISORDER
     Route: 048
  2. HALDOL [Suspect]
     Indication: PSYCHOTIC DISORDER
     Route: 065
  3. TRIHEXYPHENIDYL HCL [Suspect]
     Indication: PSYCHOTIC DISORDER
     Route: 065
  4. LEXOMIL [Suspect]
     Indication: PSYCHOTIC DISORDER
     Route: 065
  5. IMOVANE [Suspect]
     Indication: PSYCHOTIC DISORDER
     Route: 065
  6. TERCIAN [Suspect]
     Indication: PSYCHOTIC DISORDER
     Route: 065

REACTIONS (5)
  - COMA [None]
  - CONFUSIONAL STATE [None]
  - ELECTROLYTE IMBALANCE [None]
  - HYPOTHERMIA [None]
  - STATUS EPILEPTICUS [None]
